FAERS Safety Report 20410985 (Version 1)
Quarter: 2022Q1

REPORT INFORMATION
  Report Type: Spontaneous
  Country: US (occurrence: None)
  Receive Date: 20220131
  Receipt Date: 20220131
  Transmission Date: 20220424
  Serious: No
  Sender: FDA-Public Use
  Company Number: None

PATIENT
  Age: 35 Year
  Sex: Female

DRUGS (1)
  1. FLUTICASONE PROPIONATE AND SALMETEROL [Suspect]
     Active Substance: FLUTICASONE PROPIONATE\SALMETEROL XINAFOATE
     Dosage: OTHER QUANTITY : 1 PUFF;?FREQUENCY : TWICE A DAY;?
     Route: 055
     Dates: start: 20211108, end: 20211110

REACTIONS (1)
  - Rash [None]

NARRATIVE: CASE EVENT DATE: 20211110
